FAERS Safety Report 15604711 (Version 2)
Quarter: 2018Q4

REPORT INFORMATION
  Report Type: Spontaneous
  Country: JP (occurrence: JP)
  Receive Date: 20181111
  Receipt Date: 20181111
  Transmission Date: 20190205
  Serious: Yes (Other)
  Sender: FDA-Public Use
  Company Number: PHHY2018JP148433

PATIENT
  Age: 4 Month
  Sex: Male

DRUGS (4)
  1. ERYTHROMYCIN. [Suspect]
     Active Substance: ERYTHROMYCIN
     Indication: PEMPHIGOID
     Dosage: 40 MG/KG, QD
     Route: 065
  2. PREDNISOLONE. [Suspect]
     Active Substance: PREDNISOLONE
     Dosage: 2 MG/KG, QD
     Route: 048
  3. PREDNISOLONE. [Suspect]
     Active Substance: PREDNISOLONE
     Dosage: 0.1 MG/KG, QD
     Route: 048
  4. PREDNISOLONE. [Suspect]
     Active Substance: PREDNISOLONE
     Indication: PEMPHIGOID
     Dosage: 1 MG/KG, QD
     Route: 048

REACTIONS (3)
  - Hepatic function abnormal [Unknown]
  - Cushingoid [Unknown]
  - Therapy non-responder [Unknown]
